FAERS Safety Report 4554420-5 (Version None)
Quarter: 2005Q1

REPORT INFORMATION
  Report Type: 
  Country: None (occurrence: None)
  Receive Date: 20041230
  Receipt Date: 20040902
  Transmission Date: 20050727
  Serious: No
  Sender: FDA-Public Use
  Company Number: US-2004-026946

PATIENT
  Age: 73 Year
  Sex: Male
  Weight: 92.5 kg

DRUGS (4)
  1. BETAPACE [Suspect]
     Indication: ATRIAL FIBRILLATION
     Dosage: 120 MG ; 180 MG : 2X/DAY, ORAL
     Route: 048
     Dates: start: 19960101
  2. WARFARIN (WARFARIN) [Concomitant]
  3. FELODIPINE [Concomitant]
  4. ZETIA [Concomitant]

REACTIONS (1)
  - NEUROPATHY PERIPHERAL [None]
